FAERS Safety Report 11873387 (Version 8)
Quarter: 2016Q4

REPORT INFORMATION
  Report Type: Report from Study
  Country: US (occurrence: US)
  Receive Date: 20151228
  Receipt Date: 20161206
  Transmission Date: 20170206
  Serious: Yes (Hospitalization)
  Sender: FDA-Public Use
  Company Number: US-ACTELION-A-US2015-127002

PATIENT
  Age: 17 Year
  Sex: Female
  Weight: 80 kg

DRUGS (8)
  1. REVATIO [Concomitant]
     Active Substance: SILDENAFIL CITRATE
  2. TRACLEER [Suspect]
     Active Substance: BOSENTAN
     Dosage: UNK
     Route: 048
     Dates: start: 20151030
  3. REMODULIN [Suspect]
     Active Substance: TREPROSTINIL
     Indication: PULMONARY ARTERIAL HYPERTENSION
     Dosage: 11 NG/KG, PER MIN
     Route: 042
     Dates: start: 20151005
  4. CHLORHEXIDINE [Suspect]
     Active Substance: CHLORHEXIDINE
     Indication: PRODUCT USED FOR UNKNOWN INDICATION
     Dosage: UNK
     Route: 065
  5. REMODULIN [Suspect]
     Active Substance: TREPROSTINIL
     Dosage: 21 UNK, UNK
     Route: 042
  6. COUMADIN [Suspect]
     Active Substance: WARFARIN SODIUM
     Indication: PRODUCT USED FOR UNKNOWN INDICATION
     Route: 065
  7. TRACLEER [Suspect]
     Active Substance: BOSENTAN
     Indication: PULMONARY ARTERIAL HYPERTENSION
     Dosage: 125 MG, BID
     Route: 048
     Dates: start: 20151030
  8. REMODULIN [Suspect]
     Active Substance: TREPROSTINIL
     Dosage: UNK
     Route: 042

REACTIONS (35)
  - Weight decreased [Unknown]
  - Skin discolouration [Unknown]
  - Catheter site discharge [Unknown]
  - Device dislocation [Unknown]
  - Flushing [Unknown]
  - Foot fracture [Unknown]
  - Nausea [Unknown]
  - Vomiting [Unknown]
  - Syncope [Recovering/Resolving]
  - Blood pressure decreased [Recovering/Resolving]
  - Menorrhagia [Unknown]
  - Dizziness [Unknown]
  - Pruritus [Unknown]
  - Feeling hot [Unknown]
  - Loss of consciousness [Unknown]
  - Catheter site vesicles [Unknown]
  - Joint swelling [Unknown]
  - Abdominal pain [Unknown]
  - Fall [Unknown]
  - Catheter management [Unknown]
  - Accessory navicular syndrome [Unknown]
  - Diarrhoea [Unknown]
  - Catheter site infection [Unknown]
  - Application site reaction [Unknown]
  - Catheter site rash [Unknown]
  - Epistaxis [Unknown]
  - Blood disorder [Unknown]
  - Peripheral swelling [Unknown]
  - Headache [Unknown]
  - Dyspnoea [Unknown]
  - Device related infection [Unknown]
  - Catheter site erythema [Unknown]
  - Arthralgia [Unknown]
  - Oedema peripheral [Unknown]
  - Rash erythematous [Unknown]

NARRATIVE: CASE EVENT DATE: 201511
